FAERS Safety Report 12764392 (Version 1)
Quarter: 2016Q3

REPORT INFORMATION
  Report Type: Report from Study
  Country: US (occurrence: US)
  Receive Date: 20160920
  Receipt Date: 20160920
  Transmission Date: 20161109
  Serious: Yes (Other)
  Sender: FDA-Public Use
  Company Number: US-ABBVIE-16K-163-1720905-00

PATIENT
  Age: 45 Year
  Sex: Female
  Weight: 49.94 kg

DRUGS (8)
  1. NEURONTIN [Concomitant]
     Active Substance: GABAPENTIN
     Indication: NEURALGIA
  2. MORPHINE [Concomitant]
     Active Substance: MORPHINE
     Indication: PAIN
  3. HUMIRA [Suspect]
     Active Substance: ADALIMUMAB
     Indication: PSORIATIC ARTHROPATHY
     Route: 058
     Dates: start: 201409, end: 201605
  4. XANAX [Concomitant]
     Active Substance: ALPRAZOLAM
     Indication: ANXIETY
  5. CELEXA [Concomitant]
     Active Substance: CITALOPRAM HYDROBROMIDE
     Indication: DEPRESSION
  6. HYDROCODONE [Concomitant]
     Active Substance: HYDROCODONE
     Indication: PAIN
  7. TRAZODONE [Concomitant]
     Active Substance: TRAZODONE HYDROCHLORIDE
     Indication: INSOMNIA
  8. PRAVASTATIN. [Concomitant]
     Active Substance: PRAVASTATIN
     Indication: BLOOD CHOLESTEROL INCREASED

REACTIONS (8)
  - Pulmonary cavitation [Not Recovered/Not Resolved]
  - Allergic respiratory symptom [Recovered/Resolved]
  - Dermatitis allergic [Recovered/Resolved]
  - Pruritus allergic [Recovered/Resolved]
  - Herpes virus infection [Not Recovered/Not Resolved]
  - Cystitis [Recovered/Resolved]
  - Sepsis [Recovered/Resolved]
  - Food allergy [Recovered/Resolved]

NARRATIVE: CASE EVENT DATE: 201604
